FAERS Safety Report 16563748 (Version 4)
Quarter: 2019Q3

REPORT INFORMATION
  Report Type: Report from Study
  Country: AU (occurrence: AU)
  Receive Date: 20190712
  Receipt Date: 20190819
  Transmission Date: 20191004
  Serious: Yes (Hospitalization)
  Sender: FDA-Public Use
  Company Number: AU-BIOGEN-2019BI00761120

PATIENT
  Age: 15 Year
  Sex: Male

DRUGS (1)
  1. SPINRAZA [Suspect]
     Active Substance: NUSINERSEN
     Indication: SPINAL MUSCULAR ATROPHY
     Route: 037
     Dates: start: 201810

REACTIONS (3)
  - Post lumbar puncture syndrome [Recovered/Resolved]
  - Anaesthetic complication cardiac [Unknown]
  - Procedural anxiety [Unknown]
